FAERS Safety Report 19732025 (Version 1)
Quarter: 2021Q3

REPORT INFORMATION
  Report Type: Report from Study
  Country: US (occurrence: US)
  Receive Date: 20210820
  Receipt Date: 20210820
  Transmission Date: 20211014
  Serious: Yes (Other)
  Sender: FDA-Public Use
  Company Number: US-JAZZ-2021-US-015141

PATIENT
  Sex: Male

DRUGS (3)
  1. XYREM [Suspect]
     Active Substance: SODIUM OXYBATE
     Indication: FIBROMYALGIA
     Dosage: 2 GRAM, BID
     Route: 048
     Dates: start: 200707, end: 200710
  2. XYREM [Suspect]
     Active Substance: SODIUM OXYBATE
     Dosage: DOSE ADJUSTMENT
     Route: 048
     Dates: start: 200710, end: 201507
  3. XYREM [Suspect]
     Active Substance: SODIUM OXYBATE
     Dosage: 4.5 GRAM, BID
     Route: 048
     Dates: start: 201507, end: 2021

REACTIONS (5)
  - Glucose tolerance impaired [Recovered/Resolved]
  - Temporomandibular joint syndrome [Recovered/Resolved]
  - Irritable bowel syndrome [Recovered/Resolved]
  - Arthropathy [Not Recovered/Not Resolved]
  - Nasal congestion [Unknown]
